FAERS Safety Report 5240893-1 (Version None)
Quarter: 2007Q1

REPORT INFORMATION
  Report Type: 
  Country: None (occurrence: None)
  Receive Date: 20061201
  Receipt Date: 20060905
  Transmission Date: 20070707
  Serious: No
  Sender: FDA-Public Use
  Company Number: 2006PV020802

PATIENT
  Age: 54 Year
  Sex: Male
  Weight: 217.7266 kg

DRUGS (7)
  1. BYETTA [Suspect]
     Indication: DIABETES MELLITUS
     Dosage: 5 MCG;BID;SC
     Route: 058
     Dates: start: 20060801
  2. PERCOCET [Suspect]
     Indication: BACK PAIN
     Dosage: 2 DF;PRN;PO
     Route: 048
  3. HUMULIN 70/30 [Concomitant]
  4. GLUCOPHAGE [Concomitant]
  5. PEPCID AC [Concomitant]
  6. IRON [Concomitant]
  7. HUMULIN 70/30 [Concomitant]

REACTIONS (7)
  - ARTHRALGIA [None]
  - BLOOD GLUCOSE INCREASED [None]
  - DECREASED APPETITE [None]
  - DRUG INTERACTION [None]
  - NAUSEA [None]
  - PRE-EXISTING CONDITION IMPROVED [None]
  - STRESS [None]
